FAERS Safety Report 26125568 (Version 2)
Quarter: 2025Q4

REPORT INFORMATION
  Report Type: Spontaneous
  Country: EU (occurrence: EU)
  Receive Date: 20251205
  Receipt Date: 20251216
  Transmission Date: 20260119
  Serious: Yes (Other)
  Sender: AMGEN
  Company Number: EU-AMGEN-ROUSP2025237742

PATIENT
  Sex: Female

DRUGS (1)
  1. REPATHA [Suspect]
     Active Substance: EVOLOCUMAB
     Indication: Dyslipidaemia
     Dosage: 1 DOSAGE FORM (PREFILLED SYRINGE), Q2WK
     Route: 058

REACTIONS (2)
  - Hepatitis [Unknown]
  - Myalgia [Unknown]
